FAERS Safety Report 6579072-4 (Version None)
Quarter: 2010Q1

REPORT INFORMATION
  Report Type: 
  Country: None (occurrence: None)
  Receive Date: 20100212
  Receipt Date: 20100201
  Transmission Date: 20100710
  Serious: Yes (Other)
  Sender: FDA-Public Use
  Company Number: US-JNJFOC-20091103072

PATIENT
  Sex: Female
  Weight: 78 kg

DRUGS (8)
  1. REMICADE [Suspect]
     Indication: CROHN'S DISEASE
     Dosage: 9 INFUSIONS
     Route: 042
  2. REMICADE [Suspect]
     Dosage: 2 INFUSIONS
     Route: 042
  3. REMICADE [Suspect]
     Dosage: 3 INFUSIONS
     Route: 042
  4. REMICADE [Suspect]
     Dosage: 29 INFUSIONS
     Route: 042
  5. REMICADE [Suspect]
     Route: 042
  6. REMICADE [Suspect]
     Route: 042
  7. MERCAPTOPURINE [Concomitant]
  8. SULFASALAZINE [Concomitant]

REACTIONS (1)
  - MYELODYSPLASTIC SYNDROME [None]
